FAERS Safety Report 16547048 (Version 1)
Quarter: 2019Q3

REPORT INFORMATION
  Report Type: Spontaneous
  Country: GB (occurrence: GB)
  Receive Date: 20190709
  Receipt Date: 20190709
  Transmission Date: 20191004
  Serious: Yes (Other)
  Sender: FDA-Public Use
  Company Number: GB-MYLANLABS-2019M1062621

PATIENT
  Age: 80 Year
  Sex: Male
  Weight: 90 kg

DRUGS (7)
  1. ACETYLSALICYLIC ACID [Concomitant]
     Active Substance: ASPIRIN
     Dosage: 1 DOSAGE FORM, QD
     Dates: start: 20180316
  2. AMLODIPINE [Concomitant]
     Active Substance: AMLODIPINE BESYLATE
     Indication: HYPERTENSION
     Dosage: 1 DOSAGE FORM, QD
     Dates: start: 20190114
  3. RAMIPRIL. [Suspect]
     Active Substance: RAMIPRIL
     Indication: ESSENTIAL HYPERTENSION
     Dosage: NIGHT (10MG,QD)
     Dates: start: 20180316, end: 20190114
  4. BETAHISTINE [Concomitant]
     Active Substance: BETAHISTINE
     Dosage: TAKE ONE THREE OR FOUR TIMES A DAY
     Dates: start: 20180316
  5. PARACETAMOL [Concomitant]
     Active Substance: ACETAMINOPHEN
     Indication: PAIN
     Dosage: 2 DOSAGE FORM, Q6H
     Dates: start: 20180316
  6. SIMVASTATIN. [Concomitant]
     Active Substance: SIMVASTATIN
     Indication: BLOOD CHOLESTEROL INCREASED
     Dosage: AT 6PM
     Dates: start: 20180316
  7. SILDENAFIL. [Concomitant]
     Active Substance: SILDENAFIL
     Dosage: 1 DOSAGE FORM, PRN
     Dates: start: 20180316

REACTIONS (1)
  - Swollen tongue [Recovered/Resolved]

NARRATIVE: CASE EVENT DATE: 20190114
